FAERS Safety Report 20173984 (Version 2)
Quarter: 2021Q4

REPORT INFORMATION
  Report Type: Spontaneous
  Country: US (occurrence: US)
  Receive Date: 20211213
  Receipt Date: 20211215
  Transmission Date: 20220303
  Serious: No
  Sender: FDA-Public Use
  Company Number: US-NOVARTISTESTPH-NVSC2021US283700

PATIENT
  Sex: Female

DRUGS (3)
  1. RECLAST [Suspect]
     Active Substance: ZOLEDRONIC ACID
     Indication: Malignant peritoneal neoplasm
     Dosage: 100 MG, QD
     Route: 065
  2. RECLAST [Suspect]
     Active Substance: ZOLEDRONIC ACID
     Indication: Osteoporosis
  3. CLADRIBINE [Concomitant]
     Active Substance: CLADRIBINE
     Dosage: UNK
     Route: 065

REACTIONS (2)
  - Swelling [Unknown]
  - Product use in unapproved indication [Unknown]
